FAERS Safety Report 9968717 (Version 1)
Quarter: 2014Q1

REPORT INFORMATION
  Report Type: Spontaneous
  Country: US (occurrence: US)
  Receive Date: 20140306
  Receipt Date: 20140306
  Transmission Date: 20141002
  Serious: No
  Sender: FDA-Public Use
  Company Number: US-ABBVIE-13P-163-1146025-00

PATIENT
  Age: 61 Year
  Sex: Female
  Weight: 121.22 kg

DRUGS (8)
  1. HUMIRA [Suspect]
     Indication: RHEUMATOID ARTHRITIS
     Dates: start: 20130910
  2. AMBIEN CR [Concomitant]
     Indication: INSOMNIA
  3. MONTELUKAST [Concomitant]
     Indication: MUCOUS MEMBRANE DISORDER
  4. BACLOFEN [Concomitant]
     Indication: PAIN
  5. IMODIUM [Concomitant]
     Indication: IRRITABLE BOWEL SYNDROME
  6. IMODIUM [Concomitant]
     Indication: DIARRHOEA
  7. DIFLUNISAL [Concomitant]
     Indication: ARTHRITIS
  8. SERTRALINE [Concomitant]
     Indication: DEPRESSION

REACTIONS (2)
  - Injection site pain [Recovered/Resolved]
  - Device malfunction [Recovered/Resolved]
